FAERS Safety Report 17660541 (Version 2)
Quarter: 2020Q2

REPORT INFORMATION
  Report Type: Spontaneous
  Country: US (occurrence: US)
  Receive Date: 20200413
  Receipt Date: 20200414
  Transmission Date: 20200713
  Serious: Yes (Other)
  Sender: FDA-Public Use
  Company Number: US-PFIZER INC-2020150978

PATIENT
  Age: 87 Year
  Sex: Female

DRUGS (1)
  1. DOXYCYCLINE HYCLATE. [Suspect]
     Active Substance: DOXYCYCLINE HYCLATE
     Dosage: UNK

REACTIONS (6)
  - Vision blurred [Unknown]
  - Intracranial pressure increased [Unknown]
  - Nervousness [Unknown]
  - Impaired quality of life [Unknown]
  - Malaise [Unknown]
  - Swelling face [Unknown]
